FAERS Safety Report 12537727 (Version 1)
Quarter: 2016Q3

REPORT INFORMATION
  Report Type: Spontaneous
  Country: CL (occurrence: CL)
  Receive Date: 20160707
  Receipt Date: 20160707
  Transmission Date: 20161109
  Serious: Yes (Disabling, Other)
  Sender: FDA-Public Use
  Company Number: CL-ASTRAZENECA-2016SE71254

PATIENT
  Age: 68 Year
  Sex: Female

DRUGS (1)
  1. FORXIGA [Suspect]
     Active Substance: DAPAGLIFLOZIN
     Route: 048

REACTIONS (5)
  - Urinary tract infection [Recovered/Resolved]
  - Fatigue [Unknown]
  - Acute kidney injury [Unknown]
  - Glomerulonephritis rapidly progressive [Not Recovered/Not Resolved]
  - Anaemia [Unknown]

NARRATIVE: CASE EVENT DATE: 201512
